FAERS Safety Report 18624946 (Version 1)
Quarter: 2020Q4

REPORT INFORMATION
  Report Type: Spontaneous
  Country: FR (occurrence: FR)
  Receive Date: 20201216
  Receipt Date: 20201216
  Transmission Date: 20210114
  Serious: Yes (Hospitalization)
  Sender: FDA-Public Use
  Company Number: FR-ALLERGAN-2048653US

PATIENT
  Sex: Male
  Weight: 60 kg

DRUGS (1)
  1. XYDALBA [Suspect]
     Active Substance: DALBAVANCIN HYDROCHLORIDE
     Indication: SUPERINFECTION
     Dosage: 1500 MG, SINGLE
     Route: 042
     Dates: start: 20201028, end: 20201028

REACTIONS (3)
  - Pruritus [Recovered/Resolved]
  - Anaphylactic reaction [Recovered/Resolved]
  - Circulatory collapse [Recovered/Resolved]

NARRATIVE: CASE EVENT DATE: 20201028
